FAERS Safety Report 8914973 (Version 1)
Quarter: 2012Q4

REPORT INFORMATION
  Report Type: 
  Country: DZ (occurrence: DZ)
  Receive Date: 20121119
  Receipt Date: 20121119
  Transmission Date: 20130627
  Serious: Yes (Hospitalization)
  Sender: FDA-Public Use
  Company Number: DZ-ROCHE-1156907

PATIENT
  Sex: Female

DRUGS (1)
  1. ACTEMRA [Suspect]
     Indication: RHEUMATOID ARTHRITIS
     Route: 065
     Dates: start: 201211

REACTIONS (2)
  - Chloasma [Not Recovered/Not Resolved]
  - Abdominal pain [Not Recovered/Not Resolved]
